FAERS Safety Report 16305368 (Version 1)
Quarter: 2019Q2

REPORT INFORMATION
  Report Type: Spontaneous
  Country: DE (occurrence: DE)
  Receive Date: 20190513
  Receipt Date: 20190513
  Transmission Date: 20190711
  Serious: Yes (Other)
  Sender: FDA-Public Use
  Company Number: DE-BAUSCH-BL-2019-013516

PATIENT
  Age: 61 Year
  Sex: Male
  Weight: 116 kg

DRUGS (10)
  1. PREDNISOLON [Suspect]
     Active Substance: PREDNISOLONE
     Indication: COUGH
  2. SPIRIVA [Suspect]
     Active Substance: TIOTROPIUM BROMIDE MONOHYDRATE
     Indication: CHRONIC OBSTRUCTIVE PULMONARY DISEASE
     Route: 065
  3. PREDNISOLON [Suspect]
     Active Substance: PREDNISOLONE
     Indication: SPUTUM DISCOLOURED
  4. BERODUAL N [Suspect]
     Active Substance: FENOTEROL HYDROBROMIDE\IPRATROPIUM BROMIDE
     Indication: SPUTUM DISCOLOURED
  5. GLYCOPYRRONIUM/INDACATEROL/MOMETASONE (QVM149) [Suspect]
     Active Substance: GLYCOPYRROLATE\INDACATEROL\MOMETASONE FUROATE
     Indication: SPUTUM DISCOLOURED
     Route: 065
  6. PREDNISOLON [Suspect]
     Active Substance: PREDNISOLONE
     Indication: DYSPNOEA EXERTIONAL
     Dosage: TIME INTERVAL UNIT (FREQUENCY): AS REQUIRED
     Route: 065
  7. BERODUAL N [Suspect]
     Active Substance: FENOTEROL HYDROBROMIDE\IPRATROPIUM BROMIDE
     Indication: DYSPNOEA EXERTIONAL
     Dosage: TIME INTERVAL UNIT (FREQUENCY): AS REQUIRED
     Route: 065
  8. BERODUAL N [Suspect]
     Active Substance: FENOTEROL HYDROBROMIDE\IPRATROPIUM BROMIDE
     Indication: COUGH
  9. GLYCOPYRRONIUM/INDACATEROL/MOMETASONE (QVM149) [Suspect]
     Active Substance: GLYCOPYRROLATE\INDACATEROL\MOMETASONE FUROATE
     Indication: COUGH
     Dosage: FORM STRENGTH: 43/85 MCG
     Route: 065
  10. GLYCOPYRRONIUM/INDACATEROL/MOMETASONE (QVM149) [Suspect]
     Active Substance: GLYCOPYRROLATE\INDACATEROL\MOMETASONE FUROATE
     Indication: DYSPNOEA EXERTIONAL

REACTIONS (5)
  - Respiratory tract infection [Unknown]
  - Dyspnoea exertional [Unknown]
  - Sputum discoloured [Unknown]
  - Cough [Not Recovered/Not Resolved]
  - Chronic obstructive pulmonary disease [Unknown]
